FAERS Safety Report 5090675-9 (Version None)
Quarter: 2006Q3

REPORT INFORMATION
  Report Type: 
  Country: None (occurrence: None)
  Receive Date: 20060823
  Receipt Date: 20060810
  Transmission Date: 20061208
  Serious: Yes (Other)
  Sender: FDA-Public Use
  Company Number: 2006BI010703

PATIENT
  Age: 50 Year
  Sex: Female

DRUGS (2)
  1. AVONEX [Suspect]
     Indication: MULTIPLE SCLEROSIS
     Dosage: 30 UG; QW; IM
     Route: 030
     Dates: start: 20010101
  2. GABAPENTIN [Concomitant]

REACTIONS (9)
  - ARTHRALGIA [None]
  - BLADDER DISORDER [None]
  - GROIN PAIN [None]
  - MULTIPLE SCLEROSIS [None]
  - MUSCLE STRAIN [None]
  - PAIN IN EXTREMITY [None]
  - PNEUMONIA [None]
  - POOR PERIPHERAL CIRCULATION [None]
  - UPPER RESPIRATORY TRACT INFECTION [None]
